FAERS Safety Report 8592052-2 (Version None)
Quarter: 2012Q3

REPORT INFORMATION
  Report Type: 
  Country: None (occurrence: None)
  Receive Date: 20120814
  Receipt Date: 20120806
  Transmission Date: 20120928
  Serious: Yes (Hospitalization, Other)
  Sender: FDA-Public Use
  Company Number: FR-ASTELLAS-2012EU002654

PATIENT
  Sex: Female
  Weight: 50 kg

DRUGS (6)
  1. PREDNISONE TAB [Concomitant]
     Indication: PROPHYLAXIS AGAINST TRANSPLANT REJECTION
     Dosage: 2 DF, UNKNOWN/D
     Route: 048
     Dates: start: 20071113
  2. CELLCEPT [Suspect]
     Indication: RENAL TRANSPLANT
     Dosage: 1000 MG, UNKNOWN/D
     Route: 048
     Dates: start: 20071113
  3. TACROLIMUS [Suspect]
     Dosage: 5 MG, UNKNOWN/D
     Route: 065
  4. PROGRAF [Suspect]
     Indication: RENAL TRANSPLANT
     Dosage: 6.5 MG, UNKNOWN/D
     Route: 065
     Dates: start: 20071113
  5. CORTICOSTEROID NOS [Concomitant]
     Indication: IMMUNOSUPPRESSION
     Dosage: 5 MG, UNKNOWN/D
     Route: 065
  6. TACROLIMUS [Suspect]
     Indication: RENAL TRANSPLANT
     Dosage: 6 MG, UNKNOWN/D
     Route: 065
     Dates: start: 20120120

REACTIONS (3)
  - EXTRANODAL MARGINAL ZONE B-CELL LYMPHOMA (MALT TYPE) [None]
  - DIARRHOEA [None]
  - GENERAL PHYSICAL HEALTH DETERIORATION [None]
